FAERS Safety Report 13490219 (Version 3)
Quarter: 2018Q1

REPORT INFORMATION
  Report Type: Spontaneous
  Country: CH (occurrence: CH)
  Receive Date: 20170427
  Receipt Date: 20180207
  Transmission Date: 20180508
  Serious: Yes (Other)
  Sender: FDA-Public Use
  Company Number: CH-GALDERMA-CH17003057

PATIENT
  Age: 30 Year
  Sex: Female

DRUGS (4)
  1. CUTACNYL [Suspect]
     Active Substance: BENZOYL PEROXIDE
     Indication: ACNE
     Dates: end: 201702
  2. MYRTACINE / VITAMIN PP (KERACNYL PP?) [Suspect]
     Active Substance: COSMETICS
     Indication: ACNE
     Dates: end: 201702
  3. DIFFERIN [Suspect]
     Active Substance: ADAPALENE
     Indication: ACNE
     Dates: end: 201702
  4. GLUCONOLACTONE / SALICYCLIC ACID (SVR SEBIACLEAR ACTIVE?) [Suspect]
     Active Substance: COSMETICS
     Indication: ACNE
     Dates: end: 201702

REACTIONS (1)
  - Exposure during pregnancy [Recovered/Resolved]

NARRATIVE: CASE EVENT DATE: 20170121
